FAERS Safety Report 15979897 (Version 1)
Quarter: 2019Q1

REPORT INFORMATION
  Report Type: Spontaneous
  Country: GB (occurrence: GB)
  Receive Date: 20190219
  Receipt Date: 20190219
  Transmission Date: 20190418
  Serious: Yes (Other)
  Sender: FDA-Public Use
  Company Number: GB-ACCORD-107890

PATIENT
  Age: 76 Year
  Sex: Female
  Weight: 61 kg

DRUGS (9)
  1. ATENOLOL/ATENOLOL HYDROCHLORIDE [Concomitant]
     Dates: start: 20180320
  2. ATORVASTATIN [Concomitant]
     Active Substance: ATORVASTATIN
     Dates: start: 20180320
  3. CLOTRIMAZOLE. [Concomitant]
     Active Substance: CLOTRIMAZOLE
     Dosage: INSERT AT NIGHT.
     Dates: start: 20180510, end: 20180511
  4. CLOPIDOGREL [Concomitant]
     Active Substance: CLOPIDOGREL BISULFATE
     Dates: start: 20180320
  5. RAMIPRIL. [Suspect]
     Active Substance: RAMIPRIL
     Indication: PRODUCT USED FOR UNKNOWN INDICATION
     Dates: start: 20180628
  6. OMEPRAZOLE. [Concomitant]
     Active Substance: OMEPRAZOLE
     Dates: start: 20180628
  7. NITROFURANTOIN/NITROFURANTOIN SODIUM [Concomitant]
     Dates: start: 20180510, end: 20180513
  8. CLONAZEPAM. [Concomitant]
     Active Substance: CLONAZEPAM
     Dosage: 1 THREE TIMES DAILY.
     Dates: start: 20180320
  9. VOLTAROL [Concomitant]
     Active Substance: DICLOFENAC SODIUM
     Dates: start: 20180320

REACTIONS (2)
  - Joint swelling [Unknown]
  - Headache [Recovered/Resolved]

NARRATIVE: CASE EVENT DATE: 20180703
